FAERS Safety Report 22214744 (Version 1)
Quarter: 2023Q2

REPORT INFORMATION
  Report Type: Spontaneous
  Country: US (occurrence: US)
  Receive Date: 20230415
  Receipt Date: 20230415
  Transmission Date: 20230722
  Serious: No
  Sender: FDA-Public Use
  Company Number: US-JNJFOC-20190831123

PATIENT
  Age: 68 Year
  Sex: Male
  Weight: 83.082 kg

DRUGS (1)
  1. IMODIUM MULTI-SYMPTOM RELIEF [Suspect]
     Active Substance: DIMETHICONE\LOPERAMIDE HYDROCHLORIDE
     Indication: Diarrhoea
     Dosage: TWO AFTER THE FIRS LOOSE STOOL THEN ONE AFTER EACH NEXT LOOSE STOOL 3 DAYS
     Route: 048
     Dates: start: 20190820, end: 20190822

REACTIONS (2)
  - Inappropriate schedule of product administration [Unknown]
  - Product label issue [Unknown]
